FAERS Safety Report 16050576 (Version 1)
Quarter: 2019Q1

REPORT INFORMATION
  Report Type: Spontaneous
  Country: IN (occurrence: IN)
  Receive Date: 20190308
  Receipt Date: 20190308
  Transmission Date: 20190418
  Serious: Yes (Other)
  Sender: FDA-Public Use
  Company Number: IN-ACCORD-111037

PATIENT
  Age: 45 Year
  Sex: Male

DRUGS (1)
  1. METHOTREXATE. [Suspect]
     Active Substance: METHOTREXATE
     Indication: PSORIASIS
     Dosage: DURATION OF INTAKE OF ACUTE CUMULATIVE DOSE: 3 DAYS

REACTIONS (6)
  - Overdose [Unknown]
  - Hepatotoxicity [Recovered/Resolved]
  - Haemoglobin abnormal [Recovered/Resolved]
  - Mucosal ulceration [Recovered/Resolved]
  - Ulcer haemorrhage [Recovered/Resolved]
  - Platelet count abnormal [Recovered/Resolved]
